FAERS Safety Report 15116659 (Version 1)
Quarter: 2018Q3

REPORT INFORMATION
  Report Type: Spontaneous
  Country: IT (occurrence: IT)
  Receive Date: 20180706
  Receipt Date: 20180706
  Transmission Date: 20181010
  Serious: Yes (Hospitalization)
  Sender: FDA-Public Use
  Company Number: IT-TEVA-2018-IT-921621

PATIENT
  Age: 52 Year
  Sex: Female

DRUGS (4)
  1. TRITTICO 150 MG COMPRESSE RIVESTITE CON FILM A RILASCIO PROLUNGATO C [Suspect]
     Active Substance: TRAZODONE HYDROCHLORIDE
     Route: 048
  2. QUETIAPINE. [Suspect]
     Active Substance: QUETIAPINE
     Route: 065
  3. RAMIPRIL EUROGENERICI 2,5 MG COMPRESSE [Concomitant]
     Route: 048
  4. SODIO VALPROATO/ACIDO VALPROICO [Suspect]
     Active Substance: VALPROATE SODIUM
     Route: 048

REACTIONS (1)
  - Toxicity to various agents [Unknown]

NARRATIVE: CASE EVENT DATE: 20170417
